FAERS Safety Report 12939118 (Version 1)
Quarter: 2016Q4

REPORT INFORMATION
  Report Type: Spontaneous
  Country: US (occurrence: US)
  Receive Date: 20161114
  Receipt Date: 20161114
  Transmission Date: 20170207
  Serious: No
  Sender: FDA-Public Use
  Company Number: None

PATIENT
  Age: 21 Year
  Sex: Female
  Weight: 72.58 kg

DRUGS (1)
  1. PARAGARD T 380A [Suspect]
     Active Substance: COPPER

REACTIONS (6)
  - Device expulsion [None]
  - Haemorrhage [None]
  - Complication associated with device [None]
  - Libido decreased [None]
  - Pelvic inflammatory disease [None]
  - Device breakage [None]

NARRATIVE: CASE EVENT DATE: 20160905
